FAERS Safety Report 4937409-3 (Version None)
Quarter: 2006Q1

REPORT INFORMATION
  Report Type: 
  Country: None (occurrence: None)
  Receive Date: 20060302
  Receipt Date: 20060221
  Transmission Date: 20060701
  Serious: Yes (Death)
  Sender: FDA-Public Use
  Company Number: 2006-02-0766

PATIENT
  Age: 57 Year
  Sex: Male
  Weight: 65 kg

DRUGS (9)
  1. PEG-INTRON [Suspect]
     Indication: HEPATITIS C
     Dosage: 60; 30; 20; 30; 20 MCG QW SUBCUTANEOUS
     Route: 058
     Dates: start: 20050415, end: 20050422
  2. PEG-INTRON [Suspect]
     Indication: HEPATITIS C
     Dosage: 60; 30; 20; 30; 20 MCG QW SUBCUTANEOUS
     Route: 058
     Dates: start: 20050429, end: 20050429
  3. PEG-INTRON [Suspect]
     Indication: HEPATITIS C
     Dosage: 60; 30; 20; 30; 20 MCG QW SUBCUTANEOUS
     Route: 058
     Dates: start: 20050506, end: 20050806
  4. PEG-INTRON [Suspect]
     Indication: HEPATITIS C
     Dosage: 60; 30; 20; 30; 20 MCG QW SUBCUTANEOUS
     Route: 058
     Dates: start: 20050812, end: 20050903
  5. PEG-INTRON [Suspect]
     Indication: HEPATITIS C
     Dosage: 60; 30; 20; 30; 20 MCG QW SUBCUTANEOUS
     Route: 058
     Dates: start: 20050415, end: 20051105
  6. PEG-INTRON [Suspect]
     Indication: HEPATITIS C
     Dosage: 60; 30; 20; 30; 20 MCG QW SUBCUTANEOUS
     Route: 058
     Dates: start: 20051022, end: 20051105
  7. REBETOL [Suspect]
     Indication: HEPATITIS C
     Dosage: 800; 600 MG ORAL
     Route: 048
     Dates: start: 20050415, end: 20050610
  8. REBETOL [Suspect]
     Indication: HEPATITIS C
     Dosage: 800; 600 MG ORAL
     Route: 048
     Dates: start: 20050415, end: 20051111
  9. REBETOL [Suspect]
     Indication: HEPATITIS C
     Dosage: 800; 600 MG ORAL
     Route: 048
     Dates: start: 20050611, end: 20051111

REACTIONS (1)
  - GASTRIC VARICES HAEMORRHAGE [None]
